FAERS Safety Report 18054012 (Version 5)
Quarter: 2021Q3

REPORT INFORMATION
  Report Type: Spontaneous
  Country: US (occurrence: US)
  Receive Date: 20200722
  Receipt Date: 20210730
  Transmission Date: 20211014
  Serious: No
  Sender: FDA-Public Use
  Company Number: US-PFIZER INC-2020277825

PATIENT
  Age: 59 Year
  Sex: Female

DRUGS (1)
  1. XELJANZ XR [Suspect]
     Active Substance: TOFACITINIB CITRATE
     Indication: RHEUMATOID ARTHRITIS
     Dosage: 11 MG, 1X/DAY (ONCE DAILY)
     Route: 048
     Dates: start: 20200606

REACTIONS (10)
  - Diarrhoea [Recovered/Resolved]
  - Condition aggravated [Unknown]
  - Photosensitivity reaction [Unknown]
  - Inflammation [Unknown]
  - Sunburn [Unknown]
  - Pain in extremity [Unknown]
  - Musculoskeletal stiffness [Unknown]
  - Oropharyngeal pain [Unknown]
  - Depression [Unknown]
  - Osteoporosis [Unknown]

NARRATIVE: CASE EVENT DATE: 2020
